FAERS Safety Report 7270943-2 (Version None)
Quarter: 2011Q1

REPORT INFORMATION
  Report Type: 
  Country: None (occurrence: None)
  Receive Date: 20110121
  Receipt Date: 20110121
  Transmission Date: 20110831
  Serious: Yes (Hospitalization)
  Sender: FDA-Public Use
  Company Number: None

PATIENT
  Age: 49 Year
  Sex: Female
  Weight: 99.3377 kg

DRUGS (1)
  1. OLANZAPINE [Suspect]
     Indication: PSYCHOTIC DISORDER
     Dosage: 30 MG QHS PO
     Route: 048
     Dates: start: 20090401, end: 20101214

REACTIONS (2)
  - PSYCHOTIC DISORDER [None]
  - HYPOTHERMIA [None]
